FAERS Safety Report 6127281-0 (Version None)
Quarter: 2009Q1

REPORT INFORMATION
  Report Type: 
  Country: None (occurrence: None)
  Receive Date: 20090319
  Receipt Date: 20090305
  Transmission Date: 20090719
  Serious: Yes (Hospitalization)
  Sender: FDA-Public Use
  Company Number: 02100-JPN-07-0257

PATIENT
  Age: 53 Year
  Sex: Female
  Weight: 52 kg

DRUGS (4)
  1. PLAVIX [Suspect]
     Indication: CEREBRAL INFARCTION
     Dosage: 75 MG, DAILY DOSE, ORAL : 75 MG, DAILY DOSE; ORAL
     Route: 048
     Dates: start: 20070418, end: 20070501
  2. PLAVIX [Suspect]
     Indication: ISCHAEMIC STROKE
     Dosage: 75 MG, DAILY DOSE, ORAL : 75 MG, DAILY DOSE; ORAL
     Route: 048
     Dates: start: 20070418, end: 20070501
  3. PLAVIX [Suspect]
     Indication: CEREBRAL INFARCTION
     Dosage: 75 MG, DAILY DOSE, ORAL : 75 MG, DAILY DOSE; ORAL
     Route: 048
     Dates: start: 20070502, end: 20070511
  4. PLAVIX [Suspect]
     Indication: ISCHAEMIC STROKE
     Dosage: 75 MG, DAILY DOSE, ORAL : 75 MG, DAILY DOSE; ORAL
     Route: 048
     Dates: start: 20070502, end: 20070511

REACTIONS (4)
  - ACCIDENTAL OVERDOSE [None]
  - ANAEMIA [None]
  - FATIGUE [None]
  - PALLOR [None]
